FAERS Safety Report 9287181 (Version 1)
Quarter: 2013Q2

REPORT INFORMATION
  Report Type: Spontaneous
  Country: DE (occurrence: DE)
  Receive Date: 20130513
  Receipt Date: 20130513
  Transmission Date: 20140414
  Serious: Yes (Life-Threatening, Hospitalization)
  Sender: FDA-Public Use
  Company Number: DE-ELI_LILLY_AND_COMPANY-DE201305000587

PATIENT
  Age: 63 Year
  Sex: Male

DRUGS (16)
  1. OLANZAPINE [Suspect]
     Dosage: 7.5 MG, QD
     Route: 048
     Dates: start: 20121126, end: 20121127
  2. OLANZAPINE [Interacting]
     Dosage: 10 MG, QD
     Route: 048
     Dates: start: 20121128, end: 20121202
  3. OLANZAPINE [Interacting]
     Dosage: 15 MG, QD
     Route: 048
     Dates: start: 20121203, end: 20121206
  4. OLANZAPINE [Interacting]
     Dosage: 7.5 MG, QD
     Route: 048
     Dates: start: 20121207, end: 20121225
  5. OLANZAPINE [Interacting]
     Dosage: 2.5 MG, QD
     Route: 048
     Dates: start: 20121228, end: 20130104
  6. OLANZAPINE [Interacting]
     Dosage: 7.5 MG, QD
     Dates: start: 20130105
  7. PANTOPRAZOL [Interacting]
     Dosage: 80 MG, QD
     Route: 048
     Dates: end: 20121203
  8. PANTOPRAZOL [Interacting]
     Dosage: 40 MG, QD
     Dates: start: 20121204, end: 20121228
  9. VALSARTAN [Interacting]
     Dosage: 320 MG, QD
     Route: 048
     Dates: end: 20121203
  10. VALSARTAN [Interacting]
     Dosage: 160 MG, QD
     Dates: start: 20121204, end: 20121216
  11. BISOPROLOL [Concomitant]
     Dosage: 5 MG, QD
     Route: 048
  12. DIAZEPAM [Concomitant]
     Dosage: 10 MG, QD
     Route: 048
     Dates: start: 20121130
  13. ACETYLSALICYLIC ACID [Concomitant]
     Dosage: 100 MG, QD
     Route: 048
  14. EPIVIR [Concomitant]
     Dosage: 300 MG, QD
     Route: 048
  15. RITONAVIR [Concomitant]
     Dosage: 100 MG, QD
     Route: 048
  16. PREZISTA [Concomitant]
     Dosage: 1200 MG, QD
     Route: 048

REACTIONS (2)
  - Hyponatraemia [Recovered/Resolved]
  - Drug interaction [Recovered/Resolved]
